FAERS Safety Report 15009388 (Version 1)
Quarter: 2018Q2

REPORT INFORMATION
  Report Type: Spontaneous
  Country: US (occurrence: US)
  Receive Date: 20180614
  Receipt Date: 20180614
  Transmission Date: 20180711
  Serious: Yes (Other)
  Sender: FDA-Public Use
  Company Number: US-KITE, A GILEAD COMPANY-2049395

PATIENT
  Age: 69 Year
  Sex: Male

DRUGS (1)
  1. YESCARTA [Suspect]
     Active Substance: AXICABTAGENE CILOLEUCEL
     Indication: DIFFUSE LARGE B-CELL LYMPHOMA REFRACTORY
     Route: 042
     Dates: start: 20180316, end: 20180316

REACTIONS (3)
  - Neurotoxicity [Recovered/Resolved]
  - Atrial fibrillation [Recovered/Resolved]
  - Cardiac failure [Recovered/Resolved]

NARRATIVE: CASE EVENT DATE: 2018
